FAERS Safety Report 6215379-8 (Version None)
Quarter: 2009Q2

REPORT INFORMATION
  Report Type: 
  Country: None (occurrence: None)
  Receive Date: 20090604
  Receipt Date: 20090526
  Transmission Date: 20091009
  Serious: Yes (Other)
  Sender: FDA-Public Use
  Company Number: PHHY2009DE20913

PATIENT
  Age: 50 Year
  Sex: Male

DRUGS (4)
  1. IMATINIB MESYLATE [Suspect]
     Indication: CHRONIC MYELOID LEUKAEMIA
     Dosage: 800 MG, UNK
     Dates: start: 20040901
  2. IMATINIB MESYLATE [Suspect]
     Dosage: 400 MG DAILY
     Dates: start: 20050501
  3. IMATINIB MESYLATE [Suspect]
     Dosage: 600 MG UNK
     Dates: start: 20070101
  4. IFOSFAMIDE + CARBOPLATIN + ETOPOSIDE [Concomitant]
     Dosage: UNK
     Dates: start: 20040901

REACTIONS (2)
  - CHLOROMA [None]
  - HEMIPARESIS [None]
